FAERS Safety Report 23590082 (Version 1)
Quarter: 2024Q1

REPORT INFORMATION
  Report Type: Spontaneous
  Country: JP (occurrence: JP)
  Receive Date: 20240304
  Receipt Date: 20240304
  Transmission Date: 20240410
  Serious: Yes (Other)
  Sender: FDA-Public Use
  Company Number: JP-DSJP-DSJ-2024-108280

PATIENT

DRUGS (1)
  1. DENOSUMAB [Suspect]
     Active Substance: DENOSUMAB
     Indication: Spinal compression fracture
     Dosage: UNK, ADMINISTERED 2 TO 3 WEEKS AGO
     Route: 065
     Dates: start: 2024

REACTIONS (1)
  - Plasma cell myeloma [Not Recovered/Not Resolved]
